FAERS Safety Report 4369472-5 (Version None)
Quarter: 2004Q2

REPORT INFORMATION
  Report Type: 
  Country: None (occurrence: None)
  Receive Date: 20040527
  Receipt Date: 20040525
  Transmission Date: 20050107
  Serious: Yes (Other)
  Sender: FDA-Public Use
  Company Number: 163-20785-04050573

PATIENT
  Age: 39 Year
  Sex: Female

DRUGS (1)
  1. THALOMID [Suspect]
     Indication: MULTIPLE MYELOMA
     Dosage: 150 MG, DAILY, ORAL
     Route: 048
     Dates: start: 20031105

REACTIONS (1)
  - BLOOD HUMAN CHORIONIC GONADOTROPIN INCREASED [None]
